FAERS Safety Report 21103809 (Version 2)
Quarter: 2022Q4

REPORT INFORMATION
  Report Type: Spontaneous
  Country: JP (occurrence: JP)
  Receive Date: 20220720
  Receipt Date: 20221116
  Transmission Date: 20230112
  Serious: Yes (Hospitalization, Other)
  Sender: FDA-Public Use
  Company Number: JP-ASTELLAS-2022JP011010

PATIENT
  Age: 54 Year
  Sex: Female
  Weight: 57.4 kg

DRUGS (2)
  1. PROGRAF [Suspect]
     Active Substance: TACROLIMUS
     Indication: Dermatomyositis
     Dosage: UNK UNK, UNKNOWN FREQ.
     Route: 065
  2. PREDONINE [Suspect]
     Active Substance: PREDNISOLONE
     Indication: Dermatomyositis
     Dosage: UNK UNK, UNKNOWN FREQ.
     Route: 048

REACTIONS (8)
  - Pulmonary embolism [Recovering/Resolving]
  - Staphylococcal infection [Recovering/Resolving]
  - Endocarditis [Recovering/Resolving]
  - Septic pulmonary embolism [Recovering/Resolving]
  - Staphylococcal infection [Recovering/Resolving]
  - Endocarditis [Recovering/Resolving]
  - Staphylococcal infection [Recovering/Resolving]
  - Off label use [Unknown]
